FAERS Safety Report 25640380 (Version 1)
Quarter: 2025Q3

REPORT INFORMATION
  Report Type: Spontaneous
  Country: US (occurrence: US)
  Receive Date: 20250804
  Receipt Date: 20250804
  Transmission Date: 20251021
  Serious: Yes (Other)
  Sender: MERCK SHARP & DOHME LLC
  Company Number: US-009507513-2315454

PATIENT

DRUGS (2)
  1. KEYTRUDA [Suspect]
     Active Substance: PEMBROLIZUMAB
  2. PADCEV [Suspect]
     Active Substance: ENFORTUMAB VEDOTIN-EJFV

REACTIONS (1)
  - Stevens-Johnson syndrome [Unknown]
